FAERS Safety Report 7631649-0 (Version None)
Quarter: 2011Q3

REPORT INFORMATION
  Report Type: 
  Country: None (occurrence: None)
  Receive Date: 20110725
  Receipt Date: 20110207
  Transmission Date: 20111222
  Serious: Yes (Other)
  Sender: FDA-Public Use
  Company Number: US-BRISTOL-MYERS SQUIBB COMPANY-15532591

PATIENT
  Age: 74 Year
  Sex: Female
  Weight: 57 kg

DRUGS (9)
  1. VITAMIN D [Concomitant]
  2. OMEPRAZOLE [Concomitant]
  3. CALCIUM CARBONATE [Concomitant]
  4. FEMARA [Concomitant]
  5. MULTI-VITAMIN [Concomitant]
  6. APRICOT KERNEL [Concomitant]
     Dosage: DRIED APRICOT
  7. COUMADIN [Suspect]
     Indication: ATRIAL FIBRILLATION
  8. LEVOTHYROXINE SODIUM [Concomitant]
  9. RYTHMOL [Concomitant]

REACTIONS (1)
  - INTERNATIONAL NORMALISED RATIO FLUCTUATION [None]
